FAERS Safety Report 7948623-7 (Version None)
Quarter: 2011Q4

REPORT INFORMATION
  Report Type: 
  Country: None (occurrence: None)
  Receive Date: 20111130
  Receipt Date: 20111125
  Transmission Date: 20120403
  Serious: Yes (Hospitalization)
  Sender: FDA-Public Use
  Company Number: DE-ABBOTT-11P-062-0729431-00

PATIENT
  Age: 30 Year
  Sex: Male
  Weight: 80 kg

DRUGS (1)
  1. HUMIRA [Suspect]
     Indication: CROHN'S DISEASE
     Dosage: 80MG WEEK 0; 40MG WEEK 2; 40 MG EOW
     Route: 058
     Dates: start: 20100715

REACTIONS (1)
  - INTESTINAL STENOSIS [None]
